FAERS Safety Report 9844371 (Version 1)
Quarter: 2014Q1

REPORT INFORMATION
  Report Type: Spontaneous
  Country: US (occurrence: None)
  Receive Date: 20140123
  Receipt Date: 20140123
  Transmission Date: 20141002
  Serious: No
  Sender: FDA-Public Use
  Company Number: None

PATIENT
  Age: 32 Year
  Sex: Female
  Weight: 81.65 kg

DRUGS (1)
  1. EFFEXOR XR EXTENDED-RELEASE [Suspect]
     Indication: MAJOR DEPRESSION
     Route: 048
     Dates: start: 20140115, end: 20140118

REACTIONS (1)
  - Urinary retention [None]
